FAERS Safety Report 10043457 (Version 1)
Quarter: 2014Q1

REPORT INFORMATION
  Report Type: Spontaneous
  Country: US (occurrence: US)
  Receive Date: 20140328
  Receipt Date: 20140328
  Transmission Date: 20141002
  Serious: No
  Sender: FDA-Public Use
  Company Number: US-PFIZER INC-2014087516

PATIENT
  Age: 67 Year
  Sex: Male
  Weight: 95.2 kg

DRUGS (3)
  1. CHANTIX [Suspect]
     Indication: SMOKING CESSATION THERAPY
     Dosage: UNK
     Dates: start: 201403
  2. AVAPRO [Concomitant]
     Indication: HYPERTENSION
     Dosage: 150 MG, DAILY
  3. LEXAPRO [Concomitant]
     Indication: ANXIETY
     Dosage: ONE AND HALF TABLET OF 10MG, DAILY

REACTIONS (1)
  - Nightmare [Unknown]
